FAERS Safety Report 23950323 (Version 1)
Quarter: 2024Q2

REPORT INFORMATION
  Report Type: Spontaneous
  Country: FR (occurrence: FR)
  Receive Date: 20240607
  Receipt Date: 20240607
  Transmission Date: 20240715
  Serious: Yes (Other)
  Sender: FDA-Public Use
  Company Number: None

PATIENT
  Age: 29 Year
  Sex: Female

DRUGS (4)
  1. ZOLPIDEM TARTRATE [Suspect]
     Active Substance: ZOLPIDEM TARTRATE
     Dosage: 30 MG, QD
     Route: 048
     Dates: start: 2022
  2. ZOLPIDEM TARTRATE [Suspect]
     Active Substance: ZOLPIDEM TARTRATE
     Dosage: 70 MG, QD
     Route: 048
     Dates: start: 2024, end: 202405
  3. BROMAZEPAM [Suspect]
     Active Substance: BROMAZEPAM
     Dosage: 9 MG, QD
     Route: 048
     Dates: start: 2022
  4. BROMAZEPAM [Suspect]
     Active Substance: BROMAZEPAM
     Dosage: 21 MG, QD
     Route: 048
     Dates: start: 2024, end: 202405

REACTIONS (2)
  - Drug use disorder [Not Recovered/Not Resolved]
  - Cognitive disorder [Not Recovered/Not Resolved]

NARRATIVE: CASE EVENT DATE: 20220101
